FAERS Safety Report 10005970 (Version 2)
Quarter: 2014Q1

REPORT INFORMATION
  Report Type: Spontaneous
  Country: MX (occurrence: MX)
  Receive Date: 20140313
  Receipt Date: 20140313
  Transmission Date: 20141002
  Serious: Yes (Other)
  Sender: FDA-Public Use
  Company Number: MX-ROCHE-1362664

PATIENT
  Age: 80 Year
  Sex: Female
  Weight: 78 kg

DRUGS (2)
  1. LUCENTIS [Suspect]
     Indication: PRODUCT USED FOR UNKNOWN INDICATION
     Route: 050
     Dates: start: 20131101, end: 20131101
  2. LUCENTIS [Suspect]
     Route: 050
     Dates: start: 20140214

REACTIONS (2)
  - Endophthalmitis [Recovered/Resolved]
  - Macular oedema [Not Recovered/Not Resolved]
